FAERS Safety Report 6463750-1 (Version None)
Quarter: 2009Q4

REPORT INFORMATION
  Report Type: 
  Country: None (occurrence: None)
  Receive Date: 20091130
  Receipt Date: 20091130
  Transmission Date: 20100525
  Serious: Yes (Hospitalization)
  Sender: FDA-Public Use
  Company Number: None

PATIENT
  Sex: Female
  Weight: 42 kg

DRUGS (5)
  1. PREDNISONE [Suspect]
     Dosage: 560 MG
     Dates: end: 20091120
  2. VINCRISTINE SULFATE [Suspect]
     Dosage: 2 MG
     Dates: end: 20091114
  3. CYTARABINE [Suspect]
     Dosage: 70 MG
     Dates: end: 20091114
  4. DAUNORUBICIN HCL [Suspect]
     Dosage: 33 MG
     Dates: end: 20091114
  5. ONCASPAR [Suspect]
     Dosage: 3280 MG
     Dates: end: 20091117

REACTIONS (1)
  - BLOOD GLUCOSE INCREASED [None]
